FAERS Safety Report 25989784 (Version 1)
Quarter: 2025Q4

REPORT INFORMATION
  Report Type: Spontaneous
  Country: TW (occurrence: TW)
  Receive Date: 20251103
  Receipt Date: 20251103
  Transmission Date: 20260117
  Serious: Yes (Life-Threatening, Other)
  Sender: AMGEN
  Company Number: TW-AMGEN-TWNSP2025212006

PATIENT
  Age: 25 Year
  Sex: Female

DRUGS (6)
  1. FILGRASTIM [Suspect]
     Active Substance: FILGRASTIM
     Indication: Prophylaxis
     Dosage: UNK
     Route: 065
     Dates: start: 202301
  2. PREDNISONE [Suspect]
     Active Substance: PREDNISONE
     Indication: Primary mediastinal large B-cell lymphoma
     Dosage: 100 MILLIGRAM, QD (ON DAYS 1-5)
     Route: 065
     Dates: start: 202301
  3. RITUXIMAB [Suspect]
     Active Substance: RITUXIMAB
     Indication: Primary mediastinal large B-cell lymphoma
     Dosage: 375 MILLIGRAM/SQ. METER, ON DAY 1 ((375 MG/M2) WAS ADDED TO PEMBROLIZUMAB STARTING IN UNK/JUL/ 2024
     Route: 065
     Dates: start: 202301
  4. CYCLOPHOSPHAMIDE [Suspect]
     Active Substance: CYCLOPHOSPHAMIDE
     Indication: Primary mediastinal large B-cell lymphoma
     Dosage: 750 MILLIGRAM/SQ. METER
     Route: 065
     Dates: start: 202301
  5. EPIRUBICIN [Suspect]
     Active Substance: EPIRUBICIN
     Indication: Primary mediastinal large B-cell lymphoma
     Dosage: 75 MILLIGRAM/SQ. METER
     Route: 065
     Dates: start: 202301
  6. VINCRISTINE [Suspect]
     Active Substance: VINCRISTINE
     Indication: Primary mediastinal large B-cell lymphoma
     Dosage: 2 MILLIGRAM, ON DAY 2
     Route: 065
     Dates: start: 202301

REACTIONS (13)
  - Septic shock [Recovering/Resolving]
  - Superior vena cava syndrome [Recovering/Resolving]
  - Brain oedema [Recovering/Resolving]
  - Cerebral infarction [Recovering/Resolving]
  - Brain herniation [Recovering/Resolving]
  - Haemothorax [Recovering/Resolving]
  - Urinary tract candidiasis [Recovering/Resolving]
  - Systemic candida [Recovering/Resolving]
  - Cerebral haemorrhage [Recovering/Resolving]
  - Febrile neutropenia [Recovering/Resolving]
  - Hydrocephalus [Recovering/Resolving]
  - Drug ineffective [Unknown]
  - Infection [Recovering/Resolving]

NARRATIVE: CASE EVENT DATE: 20230101
